FAERS Safety Report 10054496 (Version 1)
Quarter: 2014Q2

REPORT INFORMATION
  Report Type: Spontaneous
  Country: DK (occurrence: BR)
  Receive Date: 20140402
  Receipt Date: 20140402
  Transmission Date: 20141212
  Serious: Yes (Hospitalization, Other)
  Sender: FDA-Public Use
  Company Number: BR-FRI-1000066085

PATIENT
  Age: 62 Year
  Sex: Female
  Weight: 53 kg

DRUGS (3)
  1. LEXAPRO [Suspect]
     Indication: DEPRESSION
     Dosage: 5 MG
     Route: 048
     Dates: start: 20131001, end: 20131209
  2. LEXAPRO [Suspect]
     Dosage: 10 MG
     Route: 048
     Dates: start: 20131210
  3. SYNTHROID [Concomitant]
     Indication: INSOMNIA
     Dosage: 75 MCG
     Route: 048

REACTIONS (3)
  - Hyperthermia [Recovering/Resolving]
  - Bradycardia [Recovering/Resolving]
  - Blood pressure fluctuation [Recovering/Resolving]
